FAERS Safety Report 5582797-0 (Version None)
Quarter: 2007Q4

REPORT INFORMATION
  Report Type: 
  Country: None (occurrence: None)
  Receive Date: 20071231
  Receipt Date: 20071219
  Transmission Date: 20080405
  Serious: Yes (Hospitalization)
  Sender: FDA-Public Use
  Company Number: S07-CAN-06391-02

PATIENT

DRUGS (1)
  1. PROPESS (DINOPROSTONE) [Suspect]
     Dosage: 10 MG ONCE TRANSPLACENTAL
     Route: 064
     Dates: start: 20070604, end: 20070605

REACTIONS (3)
  - CAESAREAN SECTION [None]
  - DRUG EXPOSURE DURING PREGNANCY [None]
  - FOETAL HEART RATE DECELERATION [None]
